FAERS Safety Report 13285511 (Version 1)
Quarter: 2017Q1

REPORT INFORMATION
  Report Type: Spontaneous
  Country: US (occurrence: US)
  Receive Date: 20170302
  Receipt Date: 20170302
  Transmission Date: 20170428
  Serious: No
  Sender: FDA-Public Use
  Company Number: US-009507513-1702USA006088

PATIENT
  Age: 16 Year
  Sex: Female
  Weight: 123.81 kg

DRUGS (1)
  1. NEXPLANON [Suspect]
     Active Substance: ETONOGESTREL
     Indication: CONTRACEPTION
     Dosage: 1 DF, UNK
     Dates: start: 20170209

REACTIONS (1)
  - Implant site bruising [Unknown]

NARRATIVE: CASE EVENT DATE: 20170210
